FAERS Safety Report 14137473 (Version 4)
Quarter: 2018Q1

REPORT INFORMATION
  Report Type: Report from Study
  Country: None (occurrence: US)
  Receive Date: 20171027
  Receipt Date: 20180330
  Transmission Date: 20180508
  Serious: Yes (Hospitalization)
  Sender: FDA-Public Use
  Company Number: US-ABBVIE-17K-163-2125950-00

PATIENT
  Age: 72 Year
  Sex: Male
  Weight: 79.45 kg

DRUGS (4)
  1. MERCAPTOPURINE. [Concomitant]
     Active Substance: MERCAPTOPURINE
     Indication: COLITIS ULCERATIVE
  2. HUMIRA [Suspect]
     Active Substance: ADALIMUMAB
     Indication: COLITIS ULCERATIVE
     Route: 058
     Dates: start: 201704
  3. PREDNISONE. [Concomitant]
     Active Substance: PREDNISONE
     Indication: COLITIS ULCERATIVE
  4. TYLENOL [Concomitant]
     Active Substance: ACETAMINOPHEN
     Indication: PRODUCT USED FOR UNKNOWN INDICATION

REACTIONS (11)
  - Post procedural complication [Recovered/Resolved]
  - Nephrolithiasis [Recovered/Resolved]
  - Malaise [Recovered/Resolved]
  - Epistaxis [Unknown]
  - Drug ineffective [Unknown]
  - Injection site haemorrhage [Unknown]
  - Weight increased [Not Recovered/Not Resolved]
  - Increased tendency to bruise [Unknown]
  - Dysuria [Recovered/Resolved]
  - Frequent bowel movements [Not Recovered/Not Resolved]
  - Hypoacusis [Unknown]

NARRATIVE: CASE EVENT DATE: 2017
